FAERS Safety Report 16534261 (Version 1)
Quarter: 2019Q3

REPORT INFORMATION
  Report Type: Spontaneous
  Country: US (occurrence: US)
  Receive Date: 20190704
  Receipt Date: 20190704
  Transmission Date: 20191004
  Serious: Yes (Other)
  Sender: FDA-Public Use
  Company Number: None

PATIENT
  Age: 64 Year
  Sex: Female
  Weight: 58.5 kg

DRUGS (18)
  1. MUCINEX [Concomitant]
     Active Substance: GUAIFENESIN
  2. POTASSIUM [Concomitant]
     Active Substance: POTASSIUM
  3. SINGULAIR [Concomitant]
     Active Substance: MONTELUKAST SODIUM
  4. C [Concomitant]
  5. PROBIOTIC [Concomitant]
     Active Substance: PROBIOTICS NOS
  6. GARLIQUE [Concomitant]
     Active Substance: GARLIC
  7. TURMERIC [Concomitant]
     Active Substance: HERBALS\TURMERIC
  8. COQ10 [Concomitant]
     Active Substance: UBIDECARENONE
  9. ALOHA LIPOIC ACUD [Concomitant]
  10. CENTRUM DAILY VITAMIN [Concomitant]
  11. E [Concomitant]
  12. LIVALO [Suspect]
     Active Substance: PITAVASTATIN CALCIUM
     Indication: BLOOD CHOLESTEROL INCREASED
     Dosage: ?          QUANTITY:30 TABLET(S);?
     Route: 048
     Dates: start: 20181105
  13. EZETIMIBE. [Concomitant]
     Active Substance: EZETIMIBE
  14. ZYRTEC [Concomitant]
     Active Substance: CETIRIZINE HYDROCHLORIDE
  15. B-6 [Concomitant]
  16. NIACIN. [Concomitant]
     Active Substance: NIACIN
  17. MAGNESIUM [Concomitant]
     Active Substance: MAGNESIUM
  18. MEGA RED FISH OIL [Concomitant]

REACTIONS (3)
  - Muscle spasms [None]
  - Apraxia [None]
  - Pain in extremity [None]

NARRATIVE: CASE EVENT DATE: 20190620
